FAERS Safety Report 5635793-9 (Version None)
Quarter: 2008Q1

REPORT INFORMATION
  Report Type: 
  Country: None (occurrence: None)
  Receive Date: 20080221
  Receipt Date: 20080214
  Transmission Date: 20080703
  Serious: Yes (Death)
  Sender: FDA-Public Use
  Company Number: 066-21880-08020847

PATIENT
  Age: 78 Year
  Sex: Female

DRUGS (5)
  1. REVLIMID [Suspect]
     Indication: 5Q-SYNDROME
     Dosage: 10 MG,DAILY,ORAL
     Route: 048
     Dates: start: 20080115, end: 20080201
  2. FOSAMAX [Concomitant]
  3. IDEOS (LEKOVIT CA) [Concomitant]
  4. PREZOLON (PREDNISOLONE) [Concomitant]
  5. INSULIN [Concomitant]

REACTIONS (2)
  - DRUG TOXICITY [None]
  - SEPSIS [None]
